FAERS Safety Report 6685835-7 (Version None)
Quarter: 2010Q2

REPORT INFORMATION
  Report Type: 
  Country: None (occurrence: None)
  Receive Date: 20100419
  Receipt Date: 20100408
  Transmission Date: 20101027
  Serious: Yes (Other)
  Sender: FDA-Public Use
  Company Number: US-JNJFOC-20100305143

PATIENT
  Sex: Male

DRUGS (1)
  1. REMICADE [Suspect]
     Indication: ANKYLOSING SPONDYLITIS
     Dosage: 8 DOSES:JAN-2009, 16-FEB-2009, 17-APR2009,13-MAY2009, 15-JUN2009, 14-AUG2009, 11-DEC2009, 26-FEB2010
     Route: 042

REACTIONS (1)
  - TUBERCULOSIS TEST POSITIVE [None]
